FAERS Safety Report 4365750-4 (Version None)
Quarter: 2004Q2

REPORT INFORMATION
  Report Type: 
  Country: None (occurrence: None)
  Receive Date: 20040527
  Receipt Date: 20040316
  Transmission Date: 20050107
  Serious: Yes (Other)
  Sender: FDA-Public Use
  Company Number: 200410861EU

PATIENT
  Age: 63 Year
  Sex: Female

DRUGS (11)
  1. DOCETAXEL [Suspect]
     Indication: BREAST CANCER
     Dosage: DOSE: 114-115
     Route: 042
     Dates: start: 20021219, end: 20030405
  2. ADRIAMYCIN PFS [Suspect]
     Indication: BREAST CANCER
     Route: 042
     Dates: start: 20021219, end: 20030405
  3. CYCLOPHOSPHAMIDE [Suspect]
     Indication: BREAST CANCER
     Dosage: DOSE: 750-775
     Route: 042
     Dates: start: 20021219, end: 20030405
  4. RADIOTHERAPY [Suspect]
     Indication: BREAST CANCER
     Dates: start: 20030515, end: 20030623
  5. NEUPOGEN [Concomitant]
     Route: 058
  6. CIPROFLOXACIN [Concomitant]
  7. TARIVID ORAL [Concomitant]
  8. GLAZIDIM [Concomitant]
  9. TARGOCID [Concomitant]
     Route: 042
  10. TAMOXIFEN CITRATE [Concomitant]
     Route: 048
     Dates: start: 20030623
  11. RADIOTHERAPY [Concomitant]
     Dates: start: 20030515, end: 20030623

REACTIONS (17)
  - ACUTE MYELOID LEUKAEMIA [None]
  - ACUTE PRERENAL FAILURE [None]
  - ANAEMIA [None]
  - ASPERGILLOSIS [None]
  - ASTHENIA [None]
  - CAPILLARY LEAK SYNDROME [None]
  - CARDIAC FAILURE [None]
  - HYPERNATRAEMIA [None]
  - HYPERTHYROIDISM [None]
  - LEUKOCYTOSIS [None]
  - LEUKOSTASIS [None]
  - PNEUMONIA [None]
  - PYREXIA [None]
  - RED BLOOD CELL COUNT DECREASED [None]
  - REFRACTORY ANAEMIA WITH AN EXCESS OF BLASTS [None]
  - SEPSIS [None]
  - THROMBOCYTOPENIA [None]
